FAERS Safety Report 17168996 (Version 1)
Quarter: 2019Q4

REPORT INFORMATION
  Report Type: Spontaneous
  Country: US (occurrence: US)
  Receive Date: 20191217
  Receipt Date: 20191217
  Transmission Date: 20200122
  Serious: Yes (Hospitalization)
  Sender: FDA-Public Use
  Company Number: None

PATIENT
  Age: 67 Year
  Sex: Female
  Weight: 87.3 kg

DRUGS (3)
  1. REMICADE [Suspect]
     Active Substance: INFLIXIMAB
     Indication: CROHN^S DISEASE
     Dosage: ?          OTHER FREQUENCY:5MG/KG;?
     Route: 041
     Dates: start: 20191203, end: 20191217
  2. TYLENOL [Concomitant]
     Active Substance: ACETAMINOPHEN
     Dates: start: 20191217, end: 20191217
  3. CLARITIN [Concomitant]
     Active Substance: LORATADINE
     Dates: start: 20191217, end: 20191217

REACTIONS (7)
  - Retching [None]
  - Nausea [None]
  - Dizziness [None]
  - Pallor [None]
  - Chest discomfort [None]
  - Dyspnoea [None]
  - Pruritus [None]

NARRATIVE: CASE EVENT DATE: 20191217
